FAERS Safety Report 5446095-8 (Version None)
Quarter: 2007Q3

REPORT INFORMATION
  Report Type: 
  Country: None (occurrence: None)
  Receive Date: 20070904
  Receipt Date: 20070821
  Transmission Date: 20080115
  Serious: Yes (Death, Hospitalization, Other)
  Sender: FDA-Public Use
  Company Number: 2007AP000888

PATIENT
  Age: 75 Year
  Sex: Female

DRUGS (8)
  1. SERTRALINE HYDROCHLORIDE [Suspect]
     Indication: DEPRESSION
     Dosage: 50 MG; UNKNOWN; PO; BID
     Route: 048
  2. CARBAMAZEPINE [Suspect]
     Indication: BIPOLAR DISORDER
     Dosage: 200 MG; PO; BID
     Route: 048
  3. PERICIAZINE (PERICIAZINE) [Suspect]
     Indication: BIPOLAR DISORDER
     Dosage: 5 MG; TID
  4. OLANZAPINE [Concomitant]
  5. VENLAFAXINE HCL [Concomitant]
  6. VANCOMYCIN [Concomitant]
  7. CIPROFLOXACIN [Concomitant]
  8. NOREPHINEPHRINE (NOREPINEPHRINE) [Concomitant]

REACTIONS (8)
  - ACUTE RESPIRATORY DISTRESS SYNDROME [None]
  - LUNG DISORDER [None]
  - MULTI-ORGAN FAILURE [None]
  - PNEUMONIA [None]
  - POST PROCEDURAL COMPLICATION [None]
  - PROCEDURAL HYPOTENSION [None]
  - PULMONARY OEDEMA [None]
  - RESPIRATORY FAILURE [None]
